FAERS Safety Report 25061307 (Version 1)
Quarter: 2025Q1

REPORT INFORMATION
  Report Type: Spontaneous
  Country: CN (occurrence: CN)
  Receive Date: 20250311
  Receipt Date: 20250311
  Transmission Date: 20250408
  Serious: Yes (Hospitalization, Other)
  Sender: Haleon PLC
  Company Number: CN-HALEON-2231994

PATIENT
  Age: 67 Year
  Sex: Male
  Weight: 85 kg

DRUGS (5)
  1. IBUPROFEN [Suspect]
     Active Substance: IBUPROFEN
     Indication: Upper respiratory tract infection
     Dosage: SUSTAINED RELEASE CAPSULES
     Route: 048
     Dates: start: 20250228, end: 20250302
  2. IBUPROFEN [Suspect]
     Active Substance: IBUPROFEN
     Indication: Pyrexia
  3. IBUPROFEN [Suspect]
     Active Substance: IBUPROFEN
     Indication: Productive cough
  4. IBUPROFEN [Suspect]
     Active Substance: IBUPROFEN
     Indication: Cough
  5. AMBROXOL HYDROCHLORIDE [Concomitant]
     Active Substance: AMBROXOL HYDROCHLORIDE
     Indication: Upper respiratory tract infection
     Route: 048
     Dates: start: 20250228, end: 20250302

REACTIONS (4)
  - Ocular icterus [Recovering/Resolving]
  - Hepatic function abnormal [Recovering/Resolving]
  - Yellow skin [Recovering/Resolving]
  - Drug-induced liver injury [Recovering/Resolving]

NARRATIVE: CASE EVENT DATE: 20250302
